FAERS Safety Report 16878262 (Version 2)
Quarter: 2020Q1

REPORT INFORMATION
  Report Type: Spontaneous
  Country: JP (occurrence: JP)
  Receive Date: 20191002
  Receipt Date: 20200226
  Transmission Date: 20200409
  Serious: Yes (Hospitalization, Other)
  Sender: FDA-Public Use
  Company Number: JP-AMGEN-JPNSP2019146818

PATIENT
  Age: 93 Year
  Sex: Female
  Weight: 46 kg

DRUGS (9)
  1. EVENITY [Suspect]
     Active Substance: ROMOSOZUMAB-AQQG
     Indication: OSTEOPOROSIS
     Dosage: 210 MILLIGRAM
     Route: 058
     Dates: start: 20190612, end: 20190807
  2. DONEPEZIL. [Concomitant]
     Active Substance: DONEPEZIL
     Dosage: 10 MILLIGRAM, QD  ONCE DAILY IN THE MORNING
  3. OMEPRAZOLE. [Concomitant]
     Active Substance: OMEPRAZOLE
     Dosage: 20 MILLIGRAM, QD  ONCE DAILY IN THE MORNING
  4. MEMARY [Concomitant]
     Active Substance: MEMANTINE HYDROCHLORIDE
     Dosage: 10 MILLIGRAM, QD   ONCE DAILY IN THE MORNING
  5. FURSULTIAMINE [Concomitant]
     Active Substance: FURSULTIAMINE
     Dosage: 25 MILLIGRAM, QD  ONCE DAILY IN THE MORNING
  6. BETAHISTINE MESILATE [Concomitant]
     Active Substance: BETAHISTINE MESILATE
     Dosage: 6 MILLIGRAM, QD  ONCE DAILY IN THE MORNING
  7. DIFENIDOL HYDROCHLORIDE [Concomitant]
     Active Substance: DIPHENIDOL HYDROCHLORIDE
     Dosage: 25 MILLIGRAM, QD  ONCE DAILY IN THE MORNING
  8. ETIZOLAM [Concomitant]
     Active Substance: ETIZOLAM
     Dosage: 0.5 MILLIGRAM, QD  ONCE DAILY BEFORE BEDTIME
  9. SEISHOEKKITO [Concomitant]
     Dosage: 1 DOSAGE FORM, BID  TWICE DAILY BEFORE BREAKFAST AND DINNER

REACTIONS (2)
  - Fall [Unknown]
  - Femur fracture [Unknown]

NARRATIVE: CASE EVENT DATE: 20190830
